FAERS Safety Report 15552449 (Version 5)
Quarter: 2019Q2

REPORT INFORMATION
  Report Type: Report from Study
  Country: US (occurrence: US)
  Receive Date: 20181025
  Receipt Date: 20190404
  Transmission Date: 20190711
  Serious: Yes (Hospitalization, Other)
  Sender: FDA-Public Use
  Company Number: US-ACTELION-A-NJ2018-179115

PATIENT
  Sex: Female
  Weight: 63.49 kg

DRUGS (4)
  1. VELETRI [Suspect]
     Active Substance: EPOPROSTENOL
     Dosage: 86 NG/KG, PER MIN
     Route: 042
  2. SILDENAFIL. [Concomitant]
     Active Substance: SILDENAFIL
  3. OPSUMIT [Suspect]
     Active Substance: MACITENTAN
     Indication: PULMONARY ARTERIAL HYPERTENSION
     Dosage: 10 MG, QD
     Route: 048
  4. VELETRI [Suspect]
     Active Substance: EPOPROSTENOL
     Indication: PULMONARY ARTERIAL HYPERTENSION
     Dosage: 88 NG/KG, PER MIN
     Route: 042

REACTIONS (11)
  - Device malfunction [Unknown]
  - Urticaria [Unknown]
  - Liver transplant [Unknown]
  - Hypotension [Unknown]
  - Arthropathy [Unknown]
  - Chest pain [Unknown]
  - Catheter management [Unknown]
  - Device issue [Unknown]
  - Transplant evaluation [Unknown]
  - Thrombosis in device [Unknown]
  - Pruritus generalised [Unknown]
